FAERS Safety Report 16651947 (Version 1)
Quarter: 2019Q3

REPORT INFORMATION
  Report Type: Spontaneous
  Country: US (occurrence: US)
  Receive Date: 20190731
  Receipt Date: 20190731
  Transmission Date: 20191004
  Serious: No
  Sender: FDA-Public Use
  Company Number: US-PFIZER INC-2019325450

PATIENT
  Age: 51 Year
  Sex: Male

DRUGS (4)
  1. INLYTA [Suspect]
     Active Substance: AXITINIB
     Indication: METASTASES TO LIVER
  2. INLYTA [Suspect]
     Active Substance: AXITINIB
     Indication: EMBOLISM VENOUS
     Dosage: 10 MG, TWICE DAILY (EVERY 12 HOURS, TAKE WITH A FULL GLASS OF WATER)
     Route: 048
  3. INLYTA [Suspect]
     Active Substance: AXITINIB
     Indication: RENAL CANCER
  4. INLYTA [Suspect]
     Active Substance: AXITINIB
     Indication: CHOLANGIOCARCINOMA

REACTIONS (1)
  - Nausea [Unknown]
